FAERS Safety Report 23669610 (Version 1)
Quarter: 2024Q1

REPORT INFORMATION
  Report Type: Spontaneous
  Country: US (occurrence: US)
  Receive Date: 20240325
  Receipt Date: 20240325
  Transmission Date: 20240410
  Serious: No
  Sender: FDA-Public Use
  Company Number: US-MYLANLABS-2024M1022578

PATIENT
  Age: 64 Year
  Sex: Female
  Weight: 65.77 kg

DRUGS (1)
  1. BREYNA [Suspect]
     Active Substance: BUDESONIDE\FORMOTEROL FUMARATE
     Indication: Asthma
     Dosage: UNK
     Route: 055
     Dates: start: 20240228

REACTIONS (2)
  - Dyspnoea [Recovering/Resolving]
  - Device delivery system issue [Unknown]

NARRATIVE: CASE EVENT DATE: 20240307
